FAERS Safety Report 5098582-2 (Version None)
Quarter: 2006Q3

REPORT INFORMATION
  Report Type: 
  Country: None (occurrence: None)
  Receive Date: 20060906
  Receipt Date: 20060309
  Transmission Date: 20061208
  Serious: No
  Sender: FDA-Public Use
  Company Number: US-GLAXOSMITHKLINE-A0596928A

PATIENT
  Age: 73 Year
  Sex: Female

DRUGS (6)
  1. REQUIP [Suspect]
     Indication: RESTLESS LEGS SYNDROME
     Dosage: 1MG PER DAY
     Route: 048
  2. COUMADIN [Concomitant]
  3. XANAX [Concomitant]
  4. LANOXIN [Concomitant]
  5. DILTIAZEM HCL [Concomitant]
  6. VITAMINS [Concomitant]

REACTIONS (1)
  - DRUG INEFFECTIVE [None]
